FAERS Safety Report 5474260-2 (Version None)
Quarter: 2007Q4

REPORT INFORMATION
  Report Type: 
  Country: None (occurrence: None)
  Receive Date: 20071002
  Receipt Date: 20070614
  Transmission Date: 20080405
  Serious: No
  Sender: FDA-Public Use
  Company Number: US-ASTRAZENECA-2007UW14434

PATIENT
  Sex: Female

DRUGS (2)
  1. ARIMIDEX [Suspect]
     Route: 048
     Dates: start: 20020101, end: 20070601
  2. FOSAMAX [Concomitant]

REACTIONS (3)
  - CALCINOSIS [None]
  - MYALGIA [None]
  - NAUSEA [None]
